FAERS Safety Report 7630137-5 (Version None)
Quarter: 2011Q3

REPORT INFORMATION
  Report Type: 
  Country: None (occurrence: None)
  Receive Date: 20110722
  Receipt Date: 20110720
  Transmission Date: 20111222
  Serious: Yes (Other)
  Sender: FDA-Public Use
  Company Number: US-BAYER-2011-063384

PATIENT
  Age: 47 Year
  Sex: Female

DRUGS (2)
  1. YAZ [Suspect]
     Indication: MENORRHAGIA
     Dosage: UNK
  2. YAZ [Suspect]
     Indication: PREMENSTRUAL SYNDROME

REACTIONS (4)
  - MUSCLE SPASMS [None]
  - DEEP VEIN THROMBOSIS [None]
  - PULMONARY EMBOLISM [None]
  - DYSPNOEA [None]
